FAERS Safety Report 18911470 (Version 3)
Quarter: 2021Q1

REPORT INFORMATION
  Report Type: Spontaneous
  Country: LB (occurrence: LB)
  Receive Date: 20210218
  Receipt Date: 20210302
  Transmission Date: 20210420
  Serious: Yes (Life-Threatening)
  Sender: FDA-Public Use
  Company Number: LB-ELI_LILLY_AND_COMPANY-LB202102007319

PATIENT
  Age: 75 Year
  Sex: Male

DRUGS (4)
  1. FORTEO [Suspect]
     Active Substance: TERIPARATIDE
     Indication: PRODUCT USED FOR UNKNOWN INDICATION
     Dosage: UNK, UNKNOWN
     Route: 065
     Dates: start: 20210127
  2. VIT D [COLECALCIFEROL] [Concomitant]
     Indication: OSTEOPOROSIS
  3. PHOSPHORUS [Concomitant]
     Active Substance: PHOSPHORUS
     Indication: OSTEOPOROSIS
  4. CALCIUM [Concomitant]
     Active Substance: CALCIUM
     Indication: OSTEOPOROSIS

REACTIONS (6)
  - Abdominal pain [Recovered/Resolved]
  - Myalgia [Recovered/Resolved]
  - Overdose [Unknown]
  - Wrong technique in product usage process [Unknown]
  - Fatigue [Recovered/Resolved]
  - Nausea [Unknown]

NARRATIVE: CASE EVENT DATE: 20210127
